FAERS Safety Report 6442552-6 (Version None)
Quarter: 2009Q4

REPORT INFORMATION
  Report Type: 
  Country: None (occurrence: None)
  Receive Date: 20091112
  Receipt Date: 20091103
  Transmission Date: 20100525
  Serious: Yes (Other)
  Sender: FDA-Public Use
  Company Number: 2009-04645

PATIENT
  Age: 72 Year
  Sex: Male

DRUGS (1)
  1. VELCADE [Suspect]
     Indication: DRUG USE FOR UNKNOWN INDICATION
     Dosage: 3.5 MG, UNK, UNK

REACTIONS (2)
  - EYE DISORDER [None]
  - VISUAL ACUITY REDUCED [None]
